FAERS Safety Report 11320735 (Version 3)
Quarter: 2015Q3

REPORT INFORMATION
  Report Type: Spontaneous
  Country: US (occurrence: US)
  Receive Date: 20150729
  Receipt Date: 20150825
  Transmission Date: 20151125
  Serious: Yes (Hospitalization, Other)
  Sender: FDA-Public Use
  Company Number: US-PFIZER INC-2015252333

PATIENT
  Age: 67 Year
  Sex: Male
  Weight: 72 kg

DRUGS (11)
  1. HYDROCODONE [Concomitant]
     Active Substance: HYDROCODONE
     Indication: PAIN
     Dosage: UNK, 3X/DAY
  2. OSTEO BI-FLEX [Concomitant]
     Active Substance: CHONDROITIN SULFATE A\GLUCOSAMINE
     Dosage: 1 DF, 2X/DAY (1 TAB IN THE MORNING AND 1 TAB IN THE EVENING)
  3. FENTANYL. [Concomitant]
     Active Substance: FENTANYL
     Indication: BACK PAIN
     Dosage: 50 ?G, UNK (CHANGE PATCH EVERY 3 DAYS)
     Route: 062
     Dates: start: 201311
  4. FENTANYL. [Concomitant]
     Active Substance: FENTANYL
     Indication: ARTHRALGIA
  5. MELOXICAM. [Concomitant]
     Active Substance: MELOXICAM
     Indication: ARTHRITIS
     Dosage: 7 MG, 1X/DAY (1/2 TAB IN MORNING)
  6. FENTANYL. [Concomitant]
     Active Substance: FENTANYL
     Indication: PAIN IN EXTREMITY
  7. OMEPRAZOLE. [Concomitant]
     Active Substance: OMEPRAZOLE
     Indication: ABDOMINAL DISCOMFORT
     Dosage: 20 MG  (2 TAB), 1X/DAY IN THE MORNING)
  8. GABAPENTIN. [Concomitant]
     Active Substance: GABAPENTIN
     Dosage: 300 MG, 2X/DAY
  9. METOPROLOL [Concomitant]
     Active Substance: METOPROLOL
     Dosage: 25 MG (1 TAB) EVERY 12 HRS
  10. VIAGRA [Suspect]
     Active Substance: SILDENAFIL CITRATE
     Indication: SEXUAL DYSFUNCTION
     Dosage: 100 MG, AS NEEDED
     Route: 048
     Dates: end: 201506
  11. AMLODIPINE [Concomitant]
     Active Substance: AMLODIPINE BESYLATE
     Dosage: 10 MG, DAILY

REACTIONS (4)
  - Retinal artery occlusion [Unknown]
  - Headache [Not Recovered/Not Resolved]
  - Drug effect incomplete [Unknown]
  - Blindness unilateral [Not Recovered/Not Resolved]

NARRATIVE: CASE EVENT DATE: 201507
